FAERS Safety Report 4325568-5 (Version None)
Quarter: 2004Q1

REPORT INFORMATION
  Report Type: 
  Country: None (occurrence: None)
  Receive Date: 20040324
  Receipt Date: 20040305
  Transmission Date: 20041129
  Serious: Yes (Other)
  Sender: FDA-Public Use
  Company Number: USA040260387

PATIENT
  Age: 64 Year
  Sex: Female
  Weight: 91 kg

DRUGS (4)
  1. HUMALOG [Suspect]
  2. HUMULIN 70/30 [Suspect]
  3. LANTUS [Concomitant]
  4. WARFARIN SODIUM [Concomitant]

REACTIONS (7)
  - AORTIC VALVE REPLACEMENT [None]
  - ARTHRITIS [None]
  - BLOOD GLUCOSE DECREASED [None]
  - CHONDROPATHY [None]
  - DIVERTICULITIS [None]
  - PROCEDURAL COMPLICATION [None]
  - WEIGHT DECREASED [None]
